FAERS Safety Report 5643399-0 (Version None)
Quarter: 2008Q1

REPORT INFORMATION
  Report Type: 
  Country: None (occurrence: None)
  Receive Date: 20080228
  Receipt Date: 20080215
  Transmission Date: 20080703
  Serious: No
  Sender: FDA-Public Use
  Company Number: NO-ELI_LILLY_AND_COMPANY-NO200802003447

PATIENT

DRUGS (2)
  1. CYMBALTA [Suspect]
     Indication: MAJOR DEPRESSION
     Dosage: 150 MG, UNK
     Route: 048
  2. CYMBALTA [Suspect]
     Dosage: 120 MG, UNK
     Route: 048

REACTIONS (1)
  - HEPATIC ENZYME INCREASED [None]
